FAERS Safety Report 5307746-1 (Version None)
Quarter: 2007Q2

REPORT INFORMATION
  Report Type: 
  Country: None (occurrence: None)
  Receive Date: 20070418
  Receipt Date: 20070402
  Transmission Date: 20071010
  Serious: Yes (Other)
  Sender: FDA-Public Use
  Company Number: DSA_61492_2007

PATIENT
  Age: 6 Year
  Sex: Male

DRUGS (1)
  1. DIASTAT [Suspect]
     Indication: EPILEPSY
     Dosage: 10 MG PRN RC

REACTIONS (4)
  - CONVULSION [None]
  - MEDICAL DEVICE COMPLICATION [None]
  - NO THERAPEUTIC RESPONSE [None]
  - UNDERDOSE [None]
